FAERS Safety Report 7477820-2 (Version None)
Quarter: 2011Q2

REPORT INFORMATION
  Report Type: 
  Country: None (occurrence: None)
  Receive Date: 20110513
  Receipt Date: 20110429
  Transmission Date: 20111010
  Serious: Yes (Other)
  Sender: FDA-Public Use
  Company Number: US-ELI_LILLY_AND_COMPANY-US201104006867

PATIENT
  Sex: Male

DRUGS (3)
  1. FORTEO [Suspect]
     Dosage: UNK, UNKNOWN
     Route: 065
  2. ANTIBIOTICS [Concomitant]
  3. FORTEO [Suspect]
     Indication: OSTEOPOROSIS
     Dosage: UNK, UNKNOWN
     Route: 065

REACTIONS (7)
  - RECTAL HAEMORRHAGE [None]
  - BLOOD URINE PRESENT [None]
  - PROCEDURAL PAIN [None]
  - BIOPSY PROSTATE [None]
  - PROSTATIC OPERATION [None]
  - MEMORY IMPAIRMENT [None]
  - BACK PAIN [None]
